FAERS Safety Report 5037279-1 (Version None)
Quarter: 2006Q2

REPORT INFORMATION
  Report Type: 
  Country: None (occurrence: None)
  Receive Date: 20060628
  Receipt Date: 20060620
  Transmission Date: 20061013
  Serious: Yes (Other)
  Sender: FDA-Public Use
  Company Number: AU-ROCHE-452592

PATIENT
  Age: 26 Year
  Sex: Female

DRUGS (1)
  1. ROACCUTANE [Suspect]
     Indication: DRUG USE FOR UNKNOWN INDICATION
     Route: 065

REACTIONS (1)
  - BIPOLAR I DISORDER [None]
